FAERS Safety Report 5374814-8 (Version None)
Quarter: 2007Q2

REPORT INFORMATION
  Report Type: 
  Country: None (occurrence: None)
  Receive Date: 20070629
  Receipt Date: 20070627
  Transmission Date: 20071010
  Serious: Yes (Other)
  Sender: FDA-Public Use
  Company Number: A0660325A

PATIENT
  Age: 67 Year
  Sex: Female

DRUGS (6)
  1. ADVAIR DISKUS 100/50 [Suspect]
     Indication: CHRONIC OBSTRUCTIVE PULMONARY DISEASE
     Dosage: 1PUFF PER DAY
     Route: 055
  2. PREVACID [Concomitant]
  3. MUCINEX [Concomitant]
  4. SPIRIVA [Concomitant]
  5. SINGULAIR [Concomitant]
  6. XANAX [Concomitant]

REACTIONS (2)
  - EATING DISORDER [None]
  - MOUTH ULCERATION [None]
